FAERS Safety Report 8262290-7 (Version None)
Quarter: 2012Q2

REPORT INFORMATION
  Report Type: 
  Country: None (occurrence: None)
  Receive Date: 20120405
  Receipt Date: 20120322
  Transmission Date: 20120825
  Serious: Yes (Other)
  Sender: FDA-Public Use
  Company Number: FR-TEVA-330462ISR

PATIENT

DRUGS (4)
  1. OXALIPLATIN [Suspect]
     Dosage: BOTTLE OF 20ML
     Route: 042
     Dates: start: 20120119
  2. OXALIPLATIN [Suspect]
     Indication: COLON CANCER
     Dosage: BOTTLE OF 10ML
     Route: 042
     Dates: start: 20120119
  3. LEUCOVORIN CALCIUM [Concomitant]
     Indication: COLON CANCER
  4. FLUOROURACIL [Concomitant]
     Indication: COLON CANCER

REACTIONS (2)
  - RASH GENERALISED [None]
  - HYPERSENSITIVITY [None]
